FAERS Safety Report 7270788-3 (Version None)
Quarter: 2011Q1

REPORT INFORMATION
  Report Type: 
  Country: None (occurrence: None)
  Receive Date: 20110202
  Receipt Date: 20110126
  Transmission Date: 20110831
  Serious: Yes (Other)
  Sender: FDA-Public Use
  Company Number: US-US-EMD SERONO, INC.-7006516

PATIENT
  Sex: Female

DRUGS (3)
  1. UNSPECIFIED SEIZURE MEDICATION [Suspect]
  2. UNSPECIFIED SEIZURE MEDICATION [Suspect]
  3. REBIF [Suspect]
     Indication: PRODUCT USED FOR UNKNOWN INDICATION
     Route: 058
     Dates: start: 20031103

REACTIONS (6)
  - COGNITIVE DISORDER [None]
  - DRUG INEFFECTIVE [None]
  - INJECTION SITE ERYTHEMA [None]
  - NUCLEAR MAGNETIC RESONANCE IMAGING ABNORMAL [None]
  - ANAEMIA [None]
  - INJECTION SITE INFECTION [None]
